FAERS Safety Report 21746248 (Version 1)
Quarter: 2022Q4

REPORT INFORMATION
  Report Type: Report from Study
  Country: US (occurrence: US)
  Receive Date: 20221219
  Receipt Date: 20221219
  Transmission Date: 20230113
  Serious: No
  Sender: FDA-Public Use
  Company Number: US-002147023-NVSC2022US291380

PATIENT
  Age: 60 Year
  Sex: Male

DRUGS (1)
  1. GLATOPA [Suspect]
     Active Substance: GLATIRAMER ACETATE
     Indication: Multiple sclerosis
     Dosage: 40 MG, Q48H
     Route: 058
     Dates: start: 20221206

REACTIONS (5)
  - Headache [Unknown]
  - Movement disorder [Unknown]
  - Chills [Unknown]
  - Influenza like illness [Unknown]
  - Asthenia [Unknown]

NARRATIVE: CASE EVENT DATE: 20221213
